FAERS Safety Report 10996844 (Version 1)
Quarter: 2015Q2

REPORT INFORMATION
  Report Type: Spontaneous
  Country: US (occurrence: None)
  Receive Date: 20150407
  Receipt Date: 20150407
  Transmission Date: 20150821
  Serious: Yes (Other)
  Sender: FDA-Public Use
  Company Number: None

PATIENT
  Age: 27 Year
  Sex: Female
  Weight: 71.22 kg

DRUGS (8)
  1. ALBUTEROL. [Concomitant]
     Active Substance: ALBUTEROL
  2. ASMANEX [Suspect]
     Active Substance: MOMETASONE FUROATE
     Indication: ASTHMA
     Route: 055
     Dates: start: 20150320, end: 20150322
  3. HORSETAIL [Concomitant]
  4. FLUTICANOZOLE [Concomitant]
  5. BIOTIN [Concomitant]
     Active Substance: BIOTIN
  6. FLAXSEED [Concomitant]
     Active Substance: FLAX SEED
  7. PRENATAL VITAMINS [Concomitant]
     Active Substance: VITAMINS
  8. ASMANEX [Suspect]
     Active Substance: MOMETASONE FUROATE
     Indication: INFLAMMATION
     Route: 055
     Dates: start: 20150320, end: 20150322

REACTIONS (7)
  - Abdominal pain upper [None]
  - Dysphonia [None]
  - Muscle spasms [None]
  - Oropharyngeal pain [None]
  - Chest pain [None]
  - Headache [None]
  - Throat irritation [None]

NARRATIVE: CASE EVENT DATE: 20150320
